FAERS Safety Report 6524349-1 (Version None)
Quarter: 2010Q1

REPORT INFORMATION
  Report Type: 
  Country: None (occurrence: None)
  Receive Date: 20100101
  Receipt Date: 20091222
  Transmission Date: 20100710
  Serious: Yes (Hospitalization)
  Sender: FDA-Public Use
  Company Number: US-BIOGENIDEC-2009BI035391

PATIENT
  Age: 34 Year
  Sex: Male

DRUGS (5)
  1. TYSABRI [Suspect]
     Indication: MULTIPLE SCLEROSIS
     Route: 042
     Dates: start: 20070529
  2. FLUOROQUINOLONE [Concomitant]
     Indication: NASOPHARYNGITIS
  3. PERCOCET [Concomitant]
  4. NEURONTIN [Concomitant]
     Indication: NEURALGIA
  5. ELAVIL [Concomitant]
     Indication: NEURALGIA

REACTIONS (8)
  - ANXIETY [None]
  - FATIGUE [None]
  - INFLUENZA LIKE ILLNESS [None]
  - INSOMNIA [None]
  - MULTIPLE SCLEROSIS RELAPSE [None]
  - NASOPHARYNGITIS [None]
  - NEURALGIA [None]
  - PSYCHOTIC DISORDER [None]
